FAERS Safety Report 5657624-3 (Version None)
Quarter: 2008Q1

REPORT INFORMATION
  Report Type: 
  Country: None (occurrence: None)
  Receive Date: 20080310
  Receipt Date: 20080225
  Transmission Date: 20080703
  Serious: Yes (Hospitalization)
  Sender: FDA-Public Use
  Company Number: SI-ELI_LILLY_AND_COMPANY-SI200712000822

PATIENT
  Sex: Female
  Weight: 88 kg

DRUGS (7)
  1. LISPRO [Suspect]
     Indication: DIABETES MELLITUS
     Dosage: 28 D/F 3/D
     Route: 058
     Dates: start: 20050110
  2. HUMULIN N [Suspect]
     Indication: DIABETES MELLITUS
     Dosage: 19 D/F, DAILY (1/D)
     Route: 058
     Dates: start: 20050110
  3. CORYOL [Concomitant]
     Indication: HYPERTENSION
     Dates: start: 20041203
  4. DIOVAN [Concomitant]
     Indication: HYPERTENSION
     Dosage: 80 MG, UNK
     Dates: start: 20050205
  5. PLAVIX [Concomitant]
     Indication: STENT PLACEMENT
     Dates: start: 20041229
  6. ASPIRIN [Concomitant]
     Indication: CORONARY ARTERY DISEASE
     Dates: start: 20040929
  7. CLARITIN [Concomitant]
     Dates: start: 20050120

REACTIONS (1)
  - ANGINA PECTORIS [None]
